FAERS Safety Report 17332103 (Version 1)
Quarter: 2020Q1

REPORT INFORMATION
  Report Type: Spontaneous
  Country: US (occurrence: US)
  Receive Date: 20200127
  Receipt Date: 20200127
  Transmission Date: 20200409
  Serious: No
  Sender: FDA-Public Use
  Company Number: US-ARBOR PHARMACEUTICALS, LLC-US-2019ARB001583

PATIENT
  Sex: Female

DRUGS (1)
  1. TRIPTODUR [Suspect]
     Active Substance: TRIPTORELIN
     Indication: PRECOCIOUS PUBERTY
     Dosage: UNK, SINGLE
     Route: 030
     Dates: start: 20190506, end: 20190506

REACTIONS (8)
  - Influenza [Unknown]
  - Pyrexia [Unknown]
  - Product physical consistency issue [Unknown]
  - Injection site pain [Unknown]
  - Incorrect product administration duration [Unknown]
  - Underdose [Unknown]
  - Hot flush [Unknown]
  - Therapeutic response shortened [Unknown]
